FAERS Safety Report 6538841-7 (Version None)
Quarter: 2010Q1

REPORT INFORMATION
  Report Type: 
  Country: None (occurrence: None)
  Receive Date: 20100115
  Receipt Date: 20100113
  Transmission Date: 20100710
  Serious: Yes (Hospitalization)
  Sender: FDA-Public Use
  Company Number: GB-ROXANE LABORATORIES, INC.-2010-RO-00018RO

PATIENT
  Age: 71 Year
  Sex: Female

DRUGS (8)
  1. DIGOXIN [Suspect]
     Dosage: 125 MCG
  2. CALCIUM CARBONATE ORAL SUSPENSION 1250 MG/5 ML [Suspect]
  3. OMEPRAZOLE [Suspect]
  4. CARBIMAZOLE [Suspect]
  5. WARFARIN [Suspect]
  6. VITAMIN D [Suspect]
  7. ASCORBIC ACID [Suspect]
  8. DIGIBIND [Suspect]
     Indication: THERAPEUTIC AGENT TOXICITY

REACTIONS (3)
  - ARTERIOVENOUS FISTULA THROMBOSIS [None]
  - BRADYCARDIA [None]
  - THERAPEUTIC AGENT TOXICITY [None]
